FAERS Safety Report 19109274 (Version 1)
Quarter: 2021Q2

REPORT INFORMATION
  Report Type: Spontaneous
  Country: FR (occurrence: FR)
  Receive Date: 20210409
  Receipt Date: 20210409
  Transmission Date: 20210717
  Serious: Yes (Other)
  Sender: FDA-Public Use
  Company Number: FR-AUROBINDO-AUR-APL-2021-013638

PATIENT
  Age: 31 Year
  Sex: Female

DRUGS (1)
  1. AMOXICILLIN. [Suspect]
     Active Substance: AMOXICILLIN
     Indication: WISDOM TEETH REMOVAL
     Dosage: 2 GRAM, ONCE A DAY
     Route: 048
     Dates: start: 2020, end: 2020

REACTIONS (5)
  - Dizziness [Recovered/Resolved]
  - Oedema [Recovered/Resolved]
  - Hot flush [Recovered/Resolved]
  - Rash maculo-papular [Recovered/Resolved]
  - Fatigue [Recovered/Resolved]

NARRATIVE: CASE EVENT DATE: 2020
